FAERS Safety Report 7498687-2 (Version None)
Quarter: 2011Q2

REPORT INFORMATION
  Report Type: 
  Country: None (occurrence: None)
  Receive Date: 20110524
  Receipt Date: 20110510
  Transmission Date: 20111010
  Serious: Yes (Other)
  Sender: FDA-Public Use
  Company Number: CA-JNJFOC-20110505311

PATIENT
  Sex: Male
  Weight: 102 kg

DRUGS (5)
  1. REMICADE [Suspect]
     Route: 042
     Dates: start: 20110301
  2. REMICADE [Suspect]
     Indication: CROHN'S DISEASE
     Route: 042
     Dates: start: 20090501
  3. PANTOLOC [Concomitant]
  4. DIOVAN [Concomitant]
  5. METHOTREXATE [Concomitant]

REACTIONS (1)
  - MYOCARDIAL INFARCTION [None]
